FAERS Safety Report 16238695 (Version 5)
Quarter: 2019Q3

REPORT INFORMATION
  Report Type: Spontaneous
  Country: US (occurrence: US)
  Receive Date: 20190425
  Receipt Date: 20190910
  Transmission Date: 20191004
  Serious: Yes (Other)
  Sender: FDA-Public Use
  Company Number: US-CLOVIS ONCOLOGY-CLO-2019-000733

PATIENT

DRUGS (5)
  1. ZEJULA [Suspect]
     Active Substance: NIRAPARIB
     Dosage: 300 MG, QD AT BEDTIME
     Route: 048
     Dates: start: 20190324, end: 2019
  2. ZEJULA [Suspect]
     Active Substance: NIRAPARIB
     Indication: OVARIAN CANCER
     Dosage: 300 MG, QD
     Route: 048
  3. RUBRACA [Suspect]
     Active Substance: RUCAPARIB CAMSYLATE
     Indication: PRODUCT USED FOR UNKNOWN INDICATION
     Dosage: UNK
     Dates: end: 20190228
  4. WELLBUTRIN [Concomitant]
     Active Substance: BUPROPION HYDROCHLORIDE
     Indication: PRODUCT USED FOR UNKNOWN INDICATION
  5. ZEJULA [Suspect]
     Active Substance: NIRAPARIB
     Dosage: 200 MG, QD IN THE EVENING
     Dates: start: 2019

REACTIONS (26)
  - Ligament rupture [Not Recovered/Not Resolved]
  - Erythema [Unknown]
  - Insomnia [Not Recovered/Not Resolved]
  - Nausea [Not Recovered/Not Resolved]
  - Bone pain [Unknown]
  - Decreased appetite [Not Recovered/Not Resolved]
  - Emotional disorder [Unknown]
  - Ligament sprain [Not Recovered/Not Resolved]
  - Ear pain [Unknown]
  - Hyperhidrosis [Unknown]
  - Myalgia [Unknown]
  - Feeling abnormal [Unknown]
  - Sinusitis [Unknown]
  - Headache [Unknown]
  - Pruritus [Unknown]
  - Product dose omission [Unknown]
  - Platelet count decreased [Recovered/Resolved]
  - Blood sodium decreased [Unknown]
  - Somnolence [Unknown]
  - Musculoskeletal pain [Unknown]
  - Diarrhoea [Unknown]
  - Neuropathy peripheral [Unknown]
  - Arthralgia [Unknown]
  - Blood glucose increased [Unknown]
  - Weight decreased [Unknown]
  - Dehydration [Not Recovered/Not Resolved]

NARRATIVE: CASE EVENT DATE: 2019
